FAERS Safety Report 4881620-7 (Version None)
Quarter: 2006Q1

REPORT INFORMATION
  Report Type: 
  Country: None (occurrence: None)
  Receive Date: 20060116
  Receipt Date: 20060104
  Transmission Date: 20060701
  Serious: Yes (Hospitalization)
  Sender: FDA-Public Use
  Company Number: PHHO2006AR00679

PATIENT
  Age: 54 Year
  Sex: Male

DRUGS (1)
  1. ZELMAC / HTF 919A [Suspect]
     Route: 048
     Dates: start: 20050901

REACTIONS (4)
  - COLON CANCER [None]
  - INTESTINAL OBSTRUCTION [None]
  - INTESTINAL OPERATION [None]
  - STOMACH DISCOMFORT [None]
